FAERS Safety Report 4595944-4 (Version None)
Quarter: 2005Q1

REPORT INFORMATION
  Report Type: 
  Country: None (occurrence: None)
  Receive Date: 20050224
  Receipt Date: 20050208
  Transmission Date: 20050727
  Serious: Yes (Death)
  Sender: FDA-Public Use
  Company Number: EWC050242684

PATIENT
  Age: 38 Year
  Sex: Male

DRUGS (6)
  1. ZYPREXA [Suspect]
     Indication: BIPOLAR DISORDER
     Dosage: 10 MG/2 DAY
     Dates: start: 20041223, end: 20050111
  2. ZYPREXA [Suspect]
     Indication: MANIA
     Dosage: 10 MG/2 DAY
     Dates: start: 20041223, end: 20050111
  3. VALPROIC ACID [Concomitant]
  4. LORAZEPAM [Concomitant]
  5. KCL TAB [Concomitant]
  6. PURSENNID [Concomitant]

REACTIONS (3)
  - CARDIAC ARREST [None]
  - CONDUCTION DISORDER [None]
  - SUDDEN DEATH [None]
